FAERS Safety Report 4409828-5 (Version None)
Quarter: 2004Q3

REPORT INFORMATION
  Report Type: 
  Country: None (occurrence: None)
  Receive Date: 20040727
  Receipt Date: 20040716
  Transmission Date: 20050211
  Serious: Yes (Life-Threatening, Hospitalization, Other)
  Sender: FDA-Public Use
  Company Number: 8474

PATIENT
  Age: 17 Year
  Sex: Male
  Weight: 69.2 kg

DRUGS (3)
  1. BLEOMYCIN [Suspect]
     Indication: LYMPHOMA
     Dosage: 37500 UNITS DAILY; IV
     Route: 042
     Dates: start: 20040619, end: 20040619
  2. VINBLASTINE SULFATE [Concomitant]
  3. LOMUSTINE [Concomitant]

REACTIONS (3)
  - CHEST DISCOMFORT [None]
  - HYPERPYREXIA [None]
  - HYPOTENSION [None]
